FAERS Safety Report 7544544-2 (Version None)
Quarter: 2011Q2

REPORT INFORMATION
  Report Type: 
  Country: None (occurrence: None)
  Receive Date: 20110613
  Receipt Date: 20110603
  Transmission Date: 20111010
  Serious: Yes (Hospitalization)
  Sender: FDA-Public Use
  Company Number: US-ELI_LILLY_AND_COMPANY-US201106001343

PATIENT
  Sex: Female

DRUGS (4)
  1. HUMALOG [Concomitant]
     Dosage: UNK
  2. BYETTA [Suspect]
     Indication: TYPE 2 DIABETES MELLITUS
     Dosage: 10 UG, BID
     Route: 058
  3. ACTOS [Concomitant]
     Dosage: UNK UNK, QD
  4. GLUCOVANCE [Concomitant]
     Dosage: UNK UNK, TID

REACTIONS (6)
  - PULMONARY CONGESTION [None]
  - OROPHARYNGEAL PAIN [None]
  - OFF LABEL USE [None]
  - BLOOD GLUCOSE INCREASED [None]
  - WHEEZING [None]
  - BLOOD GLUCOSE FLUCTUATION [None]
